FAERS Safety Report 19960366 (Version 1)
Quarter: 2021Q4

REPORT INFORMATION
  Report Type: Spontaneous
  Country: US (occurrence: US)
  Receive Date: 20211015
  Receipt Date: 20211015
  Transmission Date: 20220303
  Serious: No
  Sender: FDA-Public Use
  Company Number: US-GALDERMA-US2021016320

PATIENT

DRUGS (2)
  1. AKLIEF [Suspect]
     Active Substance: TRIFAROTENE
     Indication: Acne
     Dosage: 1 DOSAGE FORM
     Route: 061
  2. UNSPECIFIED INGREDIENT [Concomitant]
     Active Substance: UNSPECIFIED INGREDIENT
     Indication: Acne
     Route: 048

REACTIONS (1)
  - Rash [Recovered/Resolved]
